FAERS Safety Report 14870825 (Version 3)
Quarter: 2018Q2

REPORT INFORMATION
  Report Type: Report from Study
  Country: ZA (occurrence: ZA)
  Receive Date: 20180509
  Receipt Date: 20180524
  Transmission Date: 20180711
  Serious: Yes (Death, Hospitalization)
  Sender: FDA-Public Use
  Company Number: ZA-VIFOR (INTERNATIONAL) INC.-VIT-2018-04176

PATIENT
  Age: 51 Year
  Sex: Male

DRUGS (2)
  1. MIRCERA [Suspect]
     Active Substance: METHOXY POLYETHYLENE GLYCOL-EPOETIN BETA
     Indication: NEPHROGENIC ANAEMIA
     Route: 065
     Dates: start: 20121128
  2. COSMOFER [Concomitant]
     Active Substance: IRON DEXTRAN

REACTIONS (2)
  - Death [Fatal]
  - Anal fissure [Unknown]

NARRATIVE: CASE EVENT DATE: 20130104
